FAERS Safety Report 12298800 (Version 1)
Quarter: 2016Q2

REPORT INFORMATION
  Report Type: Spontaneous
  Country: DE (occurrence: DE)
  Receive Date: 20160425
  Receipt Date: 20160425
  Transmission Date: 20160815
  Serious: Yes (Hospitalization)
  Sender: FDA-Public Use
  Company Number: DE-BIOGEN-2016BI00225922

PATIENT
  Age: 0 Year
  Sex: Female

DRUGS (1)
  1. TYSABRI [Suspect]
     Active Substance: NATALIZUMAB
     Indication: MATERNAL EXPOSURE TIMING UNSPECIFIED
     Route: 064
     Dates: start: 20141219, end: 20150728

REACTIONS (3)
  - Low birth weight baby [Unknown]
  - Foetal exposure timing unspecified [Unknown]
  - Infection [Unknown]

NARRATIVE: CASE EVENT DATE: 20150728
